FAERS Safety Report 4408373-0 (Version None)
Quarter: 2004Q3

REPORT INFORMATION
  Report Type: 
  Country: None (occurrence: None)
  Receive Date: 20040722
  Receipt Date: 20040413
  Transmission Date: 20050211
  Serious: Yes (Other)
  Sender: FDA-Public Use
  Company Number: 205870

PATIENT
  Age: 43 Year
  Sex: Female

DRUGS (1)
  1. MABTHERA (RITUXIMAB) CONC FOR SOLUTION FOR INFUSION [Suspect]
     Indication: NON-HODGKIN'S LYMPHOMA
     Dosage: 375 MG/M2, UNK, INTRAVENOUS
     Route: 042
     Dates: start: 20001011, end: 20030327

REACTIONS (8)
  - ARTHRALGIA [None]
  - CHILLS [None]
  - CONVULSION [None]
  - DYSPNOEA [None]
  - HYPOTONIA [None]
  - INFUSION RELATED REACTION [None]
  - PARAESTHESIA [None]
  - PYREXIA [None]
